FAERS Safety Report 5707505-1 (Version None)
Quarter: 2008Q2

REPORT INFORMATION
  Report Type: 
  Country: None (occurrence: None)
  Receive Date: 20080416
  Receipt Date: 20080404
  Transmission Date: 20081010
  Serious: Yes (Hospitalization)
  Sender: FDA-Public Use
  Company Number: FR-GENENTECH-243600

PATIENT
  Sex: Female
  Weight: 57 kg

DRUGS (5)
  1. RITUXIMAB [Suspect]
     Indication: B-CELL LYMPHOMA
     Dosage: 572 MG, UNK
     Route: 042
     Dates: start: 20070221
  2. CYCLOPHOSPHAMIDE [Suspect]
     Indication: B-CELL LYMPHOMA
     Dosage: 1144 MG, UNK
     Route: 042
     Dates: start: 20070221
  3. DOXORUBICIN HCL [Suspect]
     Indication: B-CELL LYMPHOMA
     Dosage: 76 MG, UNK
     Route: 042
     Dates: start: 20070221
  4. VINCRISTINE [Suspect]
     Indication: B-CELL LYMPHOMA
     Dosage: 2 MG, UNK
     Route: 042
     Dates: start: 20070221
  5. PREDNISONE [Suspect]
     Indication: B-CELL LYMPHOMA
     Dosage: 61 MG, UNK
     Route: 042
     Dates: start: 20070221

REACTIONS (1)
  - FEBRILE NEUTROPENIA [None]
